FAERS Safety Report 9558048 (Version 1)
Quarter: 2013Q3

REPORT INFORMATION
  Report Type: Spontaneous
  Country: US (occurrence: US)
  Receive Date: 20130926
  Receipt Date: 20130926
  Transmission Date: 20140515
  Serious: No
  Sender: FDA-Public Use
  Company Number: US-BIOGENIDEC-2013BI039214

PATIENT
  Age: 55 Year
  Sex: Female

DRUGS (5)
  1. TECFIDERA [Suspect]
     Indication: MULTIPLE SCLEROSIS
     Route: 048
     Dates: start: 20130404
  2. PROVIGIL [Concomitant]
  3. TRAZODONE [Concomitant]
  4. BACLOFEN [Concomitant]
  5. PAXIL [Concomitant]

REACTIONS (1)
  - Iron deficiency [Not Recovered/Not Resolved]
